FAERS Safety Report 25096249 (Version 1)
Quarter: 2025Q1

REPORT INFORMATION
  Report Type: Spontaneous
  Country: FR (occurrence: FR)
  Receive Date: 20250319
  Receipt Date: 20250319
  Transmission Date: 20250408
  Serious: Yes (Other)
  Sender: MYLAN
  Company Number: None

PATIENT
  Age: 41 Year
  Sex: Female

DRUGS (24)
  1. FENOFIBRATE [Suspect]
     Active Substance: FENOFIBRATE
     Indication: Hypercholesterolaemia
     Dosage: 145 MILLIGRAM, QD (145 MG IN THE MORNING)
  2. FENOFIBRATE [Suspect]
     Active Substance: FENOFIBRATE
     Dosage: 145 MILLIGRAM, QD (145 MG IN THE MORNING)
     Route: 048
  3. FENOFIBRATE [Suspect]
     Active Substance: FENOFIBRATE
     Dosage: 145 MILLIGRAM, QD (145 MG IN THE MORNING)
     Route: 048
  4. FENOFIBRATE [Suspect]
     Active Substance: FENOFIBRATE
     Dosage: 145 MILLIGRAM, QD (145 MG IN THE MORNING)
  5. PANTOPRAZOLE [Suspect]
     Active Substance: PANTOPRAZOLE
     Indication: Prophylaxis against gastrointestinal ulcer
     Dosage: 20 MILLIGRAM, QD (20 MG IN THE MORNING)
  6. PANTOPRAZOLE [Suspect]
     Active Substance: PANTOPRAZOLE
     Dosage: 20 MILLIGRAM, QD (20 MG IN THE MORNING)
     Route: 048
  7. PANTOPRAZOLE [Suspect]
     Active Substance: PANTOPRAZOLE
     Dosage: 20 MILLIGRAM, QD (20 MG IN THE MORNING)
     Route: 048
  8. PANTOPRAZOLE [Suspect]
     Active Substance: PANTOPRAZOLE
     Dosage: 20 MILLIGRAM, QD (20 MG IN THE MORNING)
  9. TERALITHE [Suspect]
     Active Substance: LITHIUM CARBONATE
     Indication: Bipolar disorder
     Dosage: 3 DOSAGE FORM, QD (3 TABLETS/DAY)
  10. TERALITHE [Suspect]
     Active Substance: LITHIUM CARBONATE
     Dosage: 3 DOSAGE FORM, QD (3 TABLETS/DAY)
     Route: 048
  11. TERALITHE [Suspect]
     Active Substance: LITHIUM CARBONATE
     Dosage: 3 DOSAGE FORM, QD (3 TABLETS/DAY)
     Route: 048
  12. TERALITHE [Suspect]
     Active Substance: LITHIUM CARBONATE
     Dosage: 3 DOSAGE FORM, QD (3 TABLETS/DAY)
  13. QUETIAPINE FUMARATE [Suspect]
     Active Substance: QUETIAPINE FUMARATE
     Indication: Bipolar disorder
     Dosage: 2 DOSAGE FORM, QD (2 TABLETS AT BEDTIME)
  14. QUETIAPINE FUMARATE [Suspect]
     Active Substance: QUETIAPINE FUMARATE
     Dosage: 2 DOSAGE FORM, QD (2 TABLETS AT BEDTIME)
     Route: 048
  15. QUETIAPINE FUMARATE [Suspect]
     Active Substance: QUETIAPINE FUMARATE
     Dosage: 2 DOSAGE FORM, QD (2 TABLETS AT BEDTIME)
     Route: 048
  16. QUETIAPINE FUMARATE [Suspect]
     Active Substance: QUETIAPINE FUMARATE
     Dosage: 2 DOSAGE FORM, QD (2 TABLETS AT BEDTIME)
  17. RISPERDAL [Suspect]
     Active Substance: RISPERIDONE
     Indication: Bipolar disorder
     Dosage: 1 DOSAGE FORM, QD (1 IN THE EVENING)
  18. RISPERDAL [Suspect]
     Active Substance: RISPERIDONE
     Dosage: 1 DOSAGE FORM, QD (1 IN THE EVENING)
     Route: 048
  19. RISPERDAL [Suspect]
     Active Substance: RISPERIDONE
     Dosage: 1 DOSAGE FORM, QD (1 IN THE EVENING)
     Route: 048
  20. RISPERDAL [Suspect]
     Active Substance: RISPERIDONE
     Dosage: 1 DOSAGE FORM, QD (1 IN THE EVENING)
  21. LEVOTHYROXINE [Suspect]
     Active Substance: LEVOTHYROXINE
     Indication: Hypothyroidism
     Dosage: 1 DOSAGE FORM, QD (1 IN THE MORNING)
  22. LEVOTHYROXINE [Suspect]
     Active Substance: LEVOTHYROXINE
     Dosage: 1 DOSAGE FORM, QD (1 IN THE MORNING)
     Route: 048
  23. LEVOTHYROXINE [Suspect]
     Active Substance: LEVOTHYROXINE
     Dosage: 1 DOSAGE FORM, QD (1 IN THE MORNING)
     Route: 048
  24. LEVOTHYROXINE [Suspect]
     Active Substance: LEVOTHYROXINE
     Dosage: 1 DOSAGE FORM, QD (1 IN THE MORNING)

REACTIONS (1)
  - Diarrhoea [Not Recovered/Not Resolved]

NARRATIVE: CASE EVENT DATE: 20100101
